FAERS Safety Report 16246105 (Version 4)
Quarter: 2020Q2

REPORT INFORMATION
  Report Type: Spontaneous
  Country: US (occurrence: US)
  Receive Date: 20190426
  Receipt Date: 20200505
  Transmission Date: 20200713
  Serious: Yes (Hospitalization)
  Sender: FDA-Public Use
  Company Number: US-ACTELION-A-US2019-189453

PATIENT
  Sex: Male
  Weight: 129.25 kg

DRUGS (2)
  1. OPSUMIT [Suspect]
     Active Substance: MACITENTAN
     Indication: PULMONARY ARTERIAL HYPERTENSION
     Dosage: 10 MG, QD
     Route: 048
     Dates: start: 20190327
  2. SILDENAFIL. [Concomitant]
     Active Substance: SILDENAFIL
     Dosage: 20 MG
     Dates: start: 20190327

REACTIONS (5)
  - Product dose omission [Unknown]
  - Headache [Unknown]
  - Hypoacusis [Not Recovered/Not Resolved]
  - Cystitis [Unknown]
  - Dyspnoea [Not Recovered/Not Resolved]
